FAERS Safety Report 5712739-6 (Version None)
Quarter: 2008Q2

REPORT INFORMATION
  Report Type: 
  Country: None (occurrence: None)
  Receive Date: 20080421
  Receipt Date: 20080421
  Transmission Date: 20081010
  Serious: No
  Sender: FDA-Public Use
  Company Number: None

PATIENT
  Age: 44 Year
  Sex: Male
  Weight: 83.9154 kg

DRUGS (2)
  1. FENTANYL TRANSDERMAL SYSTEM [Suspect]
     Indication: FACET JOINT SYNDROME
     Dosage: ONE PATCH 50 MCG/H 48 HOURS TRANSDERMAL
     Route: 062
     Dates: start: 20060901, end: 20080420
  2. FENTANYL TRANSDERMAL SYSTEM [Suspect]
     Indication: INTERVERTEBRAL DISC DEGENERATION
     Dosage: ONE PATCH 50 MCG/H 48 HOURS TRANSDERMAL
     Route: 062
     Dates: start: 20060901, end: 20080420

REACTIONS (5)
  - APPLICATION SITE IRRITATION [None]
  - APPLICATION SITE URTICARIA [None]
  - PHARMACEUTICAL PRODUCT COMPLAINT [None]
  - SKIN BURNING SENSATION [None]
  - SKIN IRRITATION [None]
